FAERS Safety Report 24339052 (Version 1)
Quarter: 2024Q3

REPORT INFORMATION
  Report Type: Spontaneous
  Country: GB (occurrence: GB)
  Receive Date: 20240919
  Receipt Date: 20240919
  Transmission Date: 20241017
  Serious: Yes (Other)
  Sender: SANDOZ
  Company Number: None

PATIENT
  Age: 32 Year
  Sex: Female
  Weight: 87 kg

DRUGS (13)
  1. ONDANSETRON [Suspect]
     Active Substance: ONDANSETRON
     Indication: Product used for unknown indication
     Dosage: UNK, 4MG/2ML AMPOULES
     Route: 042
     Dates: start: 20240823
  2. QUETIAPINE FUMARATE [Concomitant]
     Active Substance: QUETIAPINE FUMARATE
     Indication: Ill-defined disorder
     Dosage: ONE AT NIGHT, AND 25 MG TABLETS 5 TIMES A DAY
     Route: 065
     Dates: start: 20230810
  3. CLOTRIMAZOLE [Concomitant]
     Active Substance: CLOTRIMAZOLE
     Indication: Ill-defined disorder
     Dosage: APPLY TWO TO THREE TIMES A DAY, TO TREAT FUNGAL...
     Route: 065
     Dates: start: 20240823, end: 20240830
  4. AMOXICILLIN\CLAVULANATE POTASSIUM [Concomitant]
     Active Substance: AMOXICILLIN\CLAVULANATE POTASSIUM
     Indication: Ill-defined disorder
     Dosage: 1 DF, Q8H TAKE ONE 3 TIMES/DAY
     Route: 065
     Dates: start: 20240808, end: 20240815
  5. CYCLIZINE [Concomitant]
     Active Substance: CYCLIZINE
     Indication: Ill-defined disorder
     Dosage: TAKE ONE UPTO THREE TIMES A DAY FOR SICKNESS
     Route: 065
     Dates: start: 20240808, end: 20240822
  6. FLUCONAZOLE [Concomitant]
     Active Substance: FLUCONAZOLE
     Indication: Ill-defined disorder
     Dosage: TAKE ONE CAPSULE
     Route: 065
     Dates: start: 20240823, end: 20240824
  7. MIRTAZAPINE [Concomitant]
     Active Substance: MIRTAZAPINE
     Indication: Ill-defined disorder
     Dosage: TAKE ONE AT NIGHT
     Route: 065
     Dates: start: 20230810
  8. NITROFURANTOIN [Concomitant]
     Active Substance: NITROFURANTOIN
     Indication: Ill-defined disorder
     Dosage: 1 DF, Q12H TAKE ONE CAPSULE TWICE DAILY FOR 3 DAYS, TO TREAT INFECTION
     Route: 065
     Dates: start: 20240823, end: 20240826
  9. OMEPRAZOLE [Concomitant]
     Active Substance: OMEPRAZOLE
     Indication: Ill-defined disorder
     Dosage: 1 DF, QD TAKE ONE DAILY
     Route: 065
     Dates: start: 20240906
  10. PROMETHAZINE HYDROCHLORIDE [Concomitant]
     Active Substance: PROMETHAZINE HYDROCHLORIDE
     Indication: Ill-defined disorder
     Dosage: 1 AT NIGHT, WHEN NECESSARY
     Route: 065
     Dates: start: 20230810
  11. QUETIAPINE [Concomitant]
     Active Substance: QUETIAPINE
     Indication: Ill-defined disorder
     Dosage: 5 TIMES A DAY WHEN NEEDED
     Route: 065
     Dates: start: 20230810
  12. VENLAFAXINE HYDROCHLORIDE [Concomitant]
     Active Substance: VENLAFAXINE HYDROCHLORIDE
     Indication: Ill-defined disorder
     Dosage: TAKE ONE DAILY IN THE MORNING
     Route: 065
     Dates: start: 20230904
  13. ZOPICLONE [Concomitant]
     Active Substance: ZOPICLONE
     Indication: Ill-defined disorder
     Dosage: TAKE ONE TO TWO AT NIGHT
     Route: 065
     Dates: start: 20230810

REACTIONS (2)
  - Swelling face [Recovered/Resolved]
  - Nausea [Unknown]
